FAERS Safety Report 12637359 (Version 1)
Quarter: 2016Q3

REPORT INFORMATION
  Report Type: Spontaneous
  Country: US (occurrence: US)
  Receive Date: 20160809
  Receipt Date: 20160809
  Transmission Date: 20161109
  Serious: No
  Sender: FDA-Public Use
  Company Number: US-BEH-2016057678

PATIENT
  Sex: Male
  Weight: 92 kg

DRUGS (32)
  1. REMERON [Concomitant]
     Active Substance: MIRTAZAPINE
  2. COUMADIN [Concomitant]
     Active Substance: WARFARIN SODIUM
  3. AZELASTINE [Concomitant]
     Active Substance: AZELASTINE
  4. RESTORIL [Concomitant]
     Active Substance: TEMAZEPAM
  5. PRIVIGEN [Suspect]
     Active Substance: HUMAN IMMUNOGLOBULIN G
     Indication: IMMUNODEFICIENCY COMMON VARIABLE
     Route: 058
  6. NITROSTAT [Concomitant]
     Active Substance: NITROGLYCERIN
  7. ALBUTEROL SULFATE. [Concomitant]
     Active Substance: ALBUTEROL SULFATE
  8. SPIRIVA [Concomitant]
     Active Substance: TIOTROPIUM BROMIDE MONOHYDRATE
  9. ACETAMINOPHEN. [Concomitant]
     Active Substance: ACETAMINOPHEN
  10. POTASSIUM CHLORIDE. [Concomitant]
     Active Substance: POTASSIUM CHLORIDE
  11. SIMVASTATIN. [Concomitant]
     Active Substance: SIMVASTATIN
  12. LEVOTHYROXINE. [Concomitant]
     Active Substance: LEVOTHYROXINE
  13. NYSTATIN. [Concomitant]
     Active Substance: NYSTATIN
  14. BUDESONIDE. [Concomitant]
     Active Substance: BUDESONIDE
  15. LASIX [Concomitant]
     Active Substance: FUROSEMIDE
  16. PULMICORT TURBUHALER [Concomitant]
     Active Substance: BUDESONIDE
  17. PREDNISONE. [Concomitant]
     Active Substance: PREDNISONE
  18. FINASTERIDE. [Concomitant]
     Active Substance: FINASTERIDE
  19. BREEZE [Concomitant]
  20. ASPIRIN EC [Concomitant]
     Active Substance: ASPIRIN
  21. ZYRTEC [Concomitant]
     Active Substance: CETIRIZINE HYDROCHLORIDE
  22. OXYGEN. [Concomitant]
     Active Substance: OXYGEN
  23. DIPHENHYDRAMINE. [Concomitant]
     Active Substance: DIPHENHYDRAMINE
  24. SODIUM CHLORIDE. [Concomitant]
     Active Substance: SODIUM CHLORIDE
  25. PROMETHAZINE-CODEINE [Concomitant]
     Active Substance: CODEINE PHOSPHATE\PROMETHAZINE
  26. PROAIR HFA [Concomitant]
     Active Substance: ALBUTEROL SULFATE
  27. EPIPEN [Concomitant]
     Active Substance: EPINEPHRINE
  28. AMIODARONE [Concomitant]
     Active Substance: AMIODARONE
  29. GABAPENTIN. [Concomitant]
     Active Substance: GABAPENTIN
  30. LEXAPRO [Concomitant]
     Active Substance: ESCITALOPRAM OXALATE
  31. HEPARIN [Concomitant]
     Active Substance: HEPARIN SODIUM
  32. ALLEGRA-D [Concomitant]
     Active Substance: FEXOFENADINE\PSEUDOEPHEDRINE

REACTIONS (2)
  - Headache [Unknown]
  - Chills [Unknown]
